APPROVED DRUG PRODUCT: VIBERZI
Active Ingredient: ELUXADOLINE
Strength: 75MG
Dosage Form/Route: TABLET;ORAL
Application: N206940 | Product #001
Applicant: ABBVIE INC
Approved: May 27, 2015 | RLD: Yes | RS: No | Type: RX

PATENTS:
Patent 9115091 | Expires: Jul 7, 2028
Patent 9364489 | Expires: Jul 7, 2028
Patent 9789125 | Expires: Jul 7, 2028
Patent 9789125 | Expires: Jul 7, 2028
Patent 8691860 | Expires: Jul 7, 2028
Patent 12097187 | Expires: Mar 14, 2033
Patent 11007179 | Expires: Mar 14, 2033
Patent 11311516 | Expires: Mar 14, 2033
Patent 9675587 | Expires: Mar 14, 2033
Patent 11229627 | Expires: Mar 14, 2033
Patent 7741356 | Expires: May 27, 2029
Patent 11160792 | Expires: Mar 14, 2033
Patent 10188632 | Expires: Mar 14, 2033
Patent 11090291 | Expires: Mar 14, 2033